FAERS Safety Report 20371077 (Version 5)
Quarter: 2022Q2

REPORT INFORMATION
  Report Type: Report from Study
  Country: US (occurrence: US)
  Receive Date: 20220124
  Receipt Date: 20220430
  Transmission Date: 20220721
  Serious: No
  Sender: FDA-Public Use
  Company Number: US-NOVARTISTESTPH-NVSC2022US013473

PATIENT
  Age: 38 Year
  Sex: Female
  Weight: 108.9 kg

DRUGS (3)
  1. COSENTYX [Suspect]
     Active Substance: SECUKINUMAB
     Indication: Psoriasis
     Dosage: 300 MG, QW (QW FOR 5 WEEKS THEN QMO)
     Route: 058
  2. COSENTYX [Suspect]
     Active Substance: SECUKINUMAB
     Dosage: UNK UNK, QMO
     Route: 058
  3. COSENTYX [Suspect]
     Active Substance: SECUKINUMAB
     Dosage: 150 MG
     Route: 065

REACTIONS (8)
  - Anxiety [Not Recovered/Not Resolved]
  - Injection site mass [Recovered/Resolved]
  - Needle issue [Recovered/Resolved]
  - Device leakage [Not Recovered/Not Resolved]
  - Pruritus [Unknown]
  - Skin discolouration [Unknown]
  - Condition aggravated [Unknown]
  - Incorrect dose administered by device [Unknown]

NARRATIVE: CASE EVENT DATE: 20220108
